FAERS Safety Report 5825371-0 (Version None)
Quarter: 2008Q3

REPORT INFORMATION
  Report Type: 
  Country: None (occurrence: None)
  Receive Date: 20080725
  Receipt Date: 20080725
  Transmission Date: 20090109
  Serious: Yes (Other)
  Sender: FDA-Public Use
  Company Number: None

PATIENT
  Age: 53 Year
  Sex: Female
  Weight: 54.4316 kg

DRUGS (1)
  1. ALDARA [Suspect]
     Indication: ACTINIC KERATOSIS
     Dosage: .25G 5 X PER WEEK TOP
     Route: 061
     Dates: start: 20080706, end: 20080718

REACTIONS (4)
  - INFLUENZA LIKE ILLNESS [None]
  - LYMPH NODE PAIN [None]
  - ORAL HERPES [None]
  - ORAL PAIN [None]
